FAERS Safety Report 8144333-4 (Version None)
Quarter: 2012Q1

REPORT INFORMATION
  Report Type: 
  Country: None (occurrence: None)
  Receive Date: 20120217
  Receipt Date: 20120208
  Transmission Date: 20120608
  Serious: Yes (Hospitalization)
  Sender: FDA-Public Use
  Company Number: SE-JNJFOC-20120203889

PATIENT
  Sex: Female

DRUGS (4)
  1. PROPAVAN [Suspect]
     Indication: MENTAL DISORDER
     Route: 065
     Dates: end: 20110901
  2. OXAZEPAM [Concomitant]
     Route: 065
  3. MIRTAZAPINE [Concomitant]
     Route: 065
  4. RISPERDAL [Suspect]
     Indication: MENTAL DISORDER
     Route: 065
     Dates: end: 20110901

REACTIONS (3)
  - FALL [None]
  - URINARY TRACT INFECTION [None]
  - PARKINSONISM [None]
